FAERS Safety Report 22349228 (Version 1)
Quarter: 2023Q2

REPORT INFORMATION
  Report Type: Spontaneous
  Country: JP (occurrence: JP)
  Receive Date: 20230522
  Receipt Date: 20230522
  Transmission Date: 20230722
  Serious: Yes (Hospitalization)
  Sender: FDA-Public Use
  Company Number: JP-MYLANLABS-2023M1051679

PATIENT
  Age: 84 Year
  Sex: Female

DRUGS (5)
  1. LIDOCAINE [Suspect]
     Active Substance: LIDOCAINE
     Indication: Ventricular tachycardia
     Dosage: 40 MILLIGRAM
     Route: 065
  2. ADENOSINE TRIPHOSPHATE [Suspect]
     Active Substance: ADENOSINE TRIPHOSPHATE
     Indication: Ventricular tachycardia
     Dosage: 10 MILLIGRAM
     Route: 065
  3. ANAMORELIN [Concomitant]
     Active Substance: ANAMORELIN
     Indication: Cachexia
     Dosage: 100 MILLIGRAM
     Route: 065
  4. TS-1 [Concomitant]
     Active Substance: GIMERACIL\OTERACIL\TEGAFUR
     Indication: Rectal cancer metastatic
     Dosage: FOR 2 YEARS
     Route: 065
  5. BEVACIZUMAB [Concomitant]
     Active Substance: BEVACIZUMAB
     Indication: Rectal cancer metastatic
     Dosage: FOR 2 YEARS
     Route: 065

REACTIONS (1)
  - Drug ineffective [Unknown]
